FAERS Safety Report 19879623 (Version 1)
Quarter: 2021Q3

REPORT INFORMATION
  Report Type: Spontaneous
  Country: US (occurrence: US)
  Receive Date: 20210924
  Receipt Date: 20210924
  Transmission Date: 20211014
  Serious: Yes (Hospitalization)
  Sender: FDA-Public Use
  Company Number: None

PATIENT
  Age: 40 Year
  Sex: Male
  Weight: 79.43 kg

DRUGS (1)
  1. REGEN?COV [Suspect]
     Active Substance: CASIRIVIMAB\IMDEVIMAB
     Indication: COVID-19 TREATMENT
     Dosage: ?          OTHER FREQUENCY:ONCE;?
     Route: 042
     Dates: start: 20210809, end: 20210809

REACTIONS (7)
  - COVID-19 pneumonia [None]
  - Monocyte count increased [None]
  - Lung infiltration [None]
  - Haemoglobin decreased [None]
  - Oxygen saturation decreased [None]
  - Dyspnoea [None]
  - Band neutrophil percentage increased [None]

NARRATIVE: CASE EVENT DATE: 20210909
